FAERS Safety Report 6665954-1 (Version None)
Quarter: 2010Q2

REPORT INFORMATION
  Report Type: 
  Country: None (occurrence: None)
  Receive Date: 20100402
  Receipt Date: 20100324
  Transmission Date: 20101027
  Serious: Yes (Hospitalization, Other)
  Sender: FDA-Public Use
  Company Number: ES-BAYER-201020639GPV

PATIENT
  Age: 51 Year
  Sex: Male

DRUGS (8)
  1. ULTRAVIST 150 [Suspect]
     Indication: ARTERIOGRAM CAROTID
  2. ULTRAVIST 150 [Suspect]
  3. CLOPIDOGREL [Concomitant]
     Indication: ANTIPLATELET THERAPY
  4. ASPIRIN [Concomitant]
     Indication: ANTIPLATELET THERAPY
  5. ACE INHIBITORS [Concomitant]
     Indication: HYPERTENSION
  6. HEPARIN [Concomitant]
     Indication: CAROTID ARTERY ANEURYSM
     Route: 042
  7. HEPARIN [Concomitant]
  8. ANESTHETICS, GENERAL [Concomitant]
     Indication: ANGIOGRAM

REACTIONS (1)
  - TOXIC ENCEPHALOPATHY [None]
